FAERS Safety Report 9308898 (Version 3)
Quarter: 2013Q2

REPORT INFORMATION
  Report Type: Spontaneous
  Country: AU (occurrence: AU)
  Receive Date: 20130524
  Receipt Date: 20130628
  Transmission Date: 20140414
  Serious: Yes (Life-Threatening)
  Sender: FDA-Public Use
  Company Number: AU-ASTRAZENECA-2013SE22189

PATIENT
  Age: 22848 Day
  Sex: Male
  Weight: 82 kg

DRUGS (1)
  1. ATACAND [Suspect]
     Indication: HYPERTENSION
     Route: 048
     Dates: start: 2003, end: 201005

REACTIONS (2)
  - Felty^s syndrome [Unknown]
  - Neutropenia [Recovering/Resolving]
